FAERS Safety Report 9868479 (Version 3)
Quarter: 2014Q1

REPORT INFORMATION
  Report Type: Spontaneous
  Country: US (occurrence: US)
  Receive Date: 20140204
  Receipt Date: 20140304
  Transmission Date: 20141002
  Serious: Yes (Other)
  Sender: FDA-Public Use
  Company Number: US-PFIZER INC-2014031095

PATIENT
  Age: 51 Year
  Sex: Female
  Weight: 135 kg

DRUGS (3)
  1. LYRICA [Suspect]
     Indication: DIABETIC NEUROPATHY
     Dosage: 75 MG, 2X/DAY
     Route: 048
  2. LYRICA [Suspect]
     Indication: NEURALGIA
  3. LYRICA [Suspect]
     Indication: SCIATICA

REACTIONS (3)
  - Diabetes mellitus [Unknown]
  - Pain [Unknown]
  - Drug withdrawal syndrome [Unknown]
